FAERS Safety Report 8367175-3 (Version None)
Quarter: 2012Q2

REPORT INFORMATION
  Report Type: 
  Country: None (occurrence: None)
  Receive Date: 20120517
  Receipt Date: 20120508
  Transmission Date: 20120825
  Serious: Yes (Hospitalization)
  Sender: FDA-Public Use
  Company Number: US-ASTRAZENECA-2012SE29545

PATIENT
  Age: 44 Year
  Sex: Male
  Weight: 74.8 kg

DRUGS (3)
  1. SORIATANE [Suspect]
     Route: 065
  2. CORTISONE SHOTS [Concomitant]
  3. CRESTOR [Suspect]
     Indication: BLOOD CHOLESTEROL
     Route: 048

REACTIONS (2)
  - PSORIASIS [None]
  - PUSTULAR PSORIASIS [None]
